FAERS Safety Report 8529439-X (Version None)
Quarter: 2012Q3

REPORT INFORMATION
  Report Type: 
  Country: None (occurrence: None)
  Receive Date: 20120723
  Receipt Date: 20120713
  Transmission Date: 20120928
  Serious: Yes (Hospitalization, Other)
  Sender: FDA-Public Use
  Company Number: US-BAYER-2012-023909

PATIENT
  Age: 24 Year
  Sex: Female
  Weight: 52 kg

DRUGS (5)
  1. ADDERALL 5 [Concomitant]
  2. YAZ [Suspect]
     Indication: CONTRACEPTION
     Dosage: UNK
     Dates: start: 20090101, end: 20091201
  3. RHINOCORT [Concomitant]
  4. YAZ [Suspect]
     Dosage: UNK
     Dates: start: 20090101, end: 20090101
  5. ALBUTEROL [Concomitant]

REACTIONS (7)
  - MENTAL DISORDER [None]
  - EMOTIONAL DISTRESS [None]
  - GENERAL PHYSICAL HEALTH DETERIORATION [None]
  - ANXIETY [None]
  - CHOLANGITIS SCLEROSING [None]
  - GALLBLADDER INJURY [None]
  - PAIN [None]
